FAERS Safety Report 9838316 (Version 2)
Quarter: 2014Q1

REPORT INFORMATION
  Report Type: Spontaneous
  Country: US (occurrence: US)
  Receive Date: 20140123
  Receipt Date: 20140131
  Transmission Date: 20141002
  Serious: No
  Sender: FDA-Public Use
  Company Number: US-GILEAD-2014-0092644

PATIENT
  Age: 45 Year
  Sex: Male
  Weight: 56.24 kg

DRUGS (9)
  1. SOVALDI [Suspect]
     Indication: HEPATITIS C
     Dosage: 400 MG, QD
     Route: 048
     Dates: start: 20140102
  2. RIBAVIRIN [Suspect]
     Indication: HEPATITIS C
     Dosage: 1200 MG, QD
     Route: 048
     Dates: start: 20140102
  3. ATAZANAVIR [Suspect]
     Indication: HIV INFECTION
     Dosage: 300 MG, UNK
     Route: 048
     Dates: start: 20131217
  4. RITONAVIR [Suspect]
     Indication: HIV INFECTION
     Dosage: 100 MG, UNK
     Route: 048
     Dates: start: 20131217
  5. TRUVADA [Concomitant]
     Indication: HIV INFECTION
     Dosage: 1 DF, UNK
     Route: 048
     Dates: start: 20131217
  6. DILANTIN                           /00017401/ [Concomitant]
     Indication: CONVULSION
     Dosage: 300 MG, BID
     Route: 048
  7. BACTRIM [Concomitant]
     Dosage: 800-160MG
     Route: 048
  8. OXYCONTIN [Concomitant]
     Dosage: 80 MG, BID
     Route: 048
  9. OXYCODONE [Concomitant]
     Dosage: 15 MG, PRN
     Route: 048

REACTIONS (2)
  - Vomiting [Not Recovered/Not Resolved]
  - Nausea [Not Recovered/Not Resolved]
